FAERS Safety Report 5909268-3 (Version None)
Quarter: 2008Q4

REPORT INFORMATION
  Report Type: 
  Country: None (occurrence: None)
  Receive Date: 20081006
  Receipt Date: 20081002
  Transmission Date: 20090506
  Serious: Yes (Disabling, Other)
  Sender: FDA-Public Use
  Company Number: US-ABBOTT-08P-163-0454946-00

PATIENT
  Age: 52 Year
  Sex: Male

DRUGS (2)
  1. HUMIRA [Suspect]
     Indication: CROHN'S DISEASE
     Route: 058
     Dates: start: 20071101, end: 20080201
  2. HUMIRA [Suspect]
     Route: 058
     Dates: start: 20080424

REACTIONS (2)
  - ARTHRALGIA [None]
  - SINUSITIS [None]
